FAERS Safety Report 6930213-6 (Version None)
Quarter: 2010Q3

REPORT INFORMATION
  Report Type: 
  Country: None (occurrence: None)
  Receive Date: 20100817
  Receipt Date: 20100817
  Transmission Date: 20110219
  Serious: No
  Sender: FDA-Public Use
  Company Number: None

PATIENT
  Sex: Female

DRUGS (1)
  1. ALBUTEROL SULATE [Suspect]
     Dosage: ONE TREATMENT EVERY 2HRS
     Dates: start: 20100729, end: 20100811

REACTIONS (5)
  - DRUG INEFFECTIVE [None]
  - PRODUCT TASTE ABNORMAL [None]
  - RETCHING [None]
  - THROAT TIGHTNESS [None]
  - VOMITING [None]
